APPROVED DRUG PRODUCT: KEFZOL
Active Ingredient: CEFAZOLIN SODIUM
Strength: EQ 1GM BASE/VIAL
Dosage Form/Route: INJECTABLE;INJECTION
Application: A061773 | Product #003
Applicant: ACS DOBFAR SPA
Approved: Approved Prior to Jan 1, 1982 | RLD: No | RS: No | Type: DISCN